FAERS Safety Report 11129335 (Version 1)
Quarter: 2015Q2

REPORT INFORMATION
  Report Type: Spontaneous
  Country: US (occurrence: US)
  Receive Date: 20150521
  Receipt Date: 20150521
  Transmission Date: 20150821
  Serious: No
  Sender: FDA-Public Use
  Company Number: US-PFIZER INC-2015171736

PATIENT
  Sex: Female

DRUGS (1)
  1. ESTRING [Suspect]
     Active Substance: ESTRADIOL
     Dosage: UNK
     Dates: start: 201412

REACTIONS (3)
  - Urticaria [Recovered/Resolved]
  - Rash papular [Recovered/Resolved]
  - Rash generalised [Recovered/Resolved]
